FAERS Safety Report 6923820-8 (Version None)
Quarter: 2010Q3

REPORT INFORMATION
  Report Type: 
  Country: None (occurrence: None)
  Receive Date: 20100813
  Receipt Date: 20100730
  Transmission Date: 20110219
  Serious: Yes (Hospitalization)
  Sender: FDA-Public Use
  Company Number: PHHY2010CA50406

PATIENT
  Sex: Female

DRUGS (1)
  1. ZOMETA [Suspect]
     Indication: BREAST CANCER METASTATIC
     Dosage: ONCE IN MONTH
     Route: 042
     Dates: start: 20100503

REACTIONS (3)
  - CHEST TUBE INSERTION [None]
  - PLEURAL EFFUSION [None]
  - THORACIC CAVITY DRAINAGE [None]
